APPROVED DRUG PRODUCT: HYDROCHLOROTHIAZIDE
Active Ingredient: HYDROCHLOROTHIAZIDE
Strength: 12.5MG
Dosage Form/Route: CAPSULE;ORAL
Application: A075640 | Product #001
Applicant: QUAGEN PHARMACEUTICALS LLC
Approved: Jan 28, 2000 | RLD: No | RS: No | Type: DISCN